FAERS Safety Report 8515521-X (Version None)
Quarter: 2012Q3

REPORT INFORMATION
  Report Type: 
  Country: None (occurrence: None)
  Receive Date: 20120717
  Receipt Date: 20120710
  Transmission Date: 20120928
  Serious: Yes (Other)
  Sender: FDA-Public Use
  Company Number: US-US-EMD SERONO, INC.-7146755

PATIENT
  Sex: Female

DRUGS (2)
  1. REBIF [Suspect]
     Indication: MULTIPLE SCLEROSIS
     Route: 058
     Dates: start: 20090710
  2. CYMBALTA [Concomitant]
     Indication: PAIN

REACTIONS (5)
  - PITUITARY TUMOUR [None]
  - FALL [None]
  - WEIGHT INCREASED [None]
  - DEPRESSION [None]
  - LIVER FUNCTION TEST ABNORMAL [None]
